FAERS Safety Report 6018380-2 (Version None)
Quarter: 2008Q4

REPORT INFORMATION
  Report Type: 
  Country: None (occurrence: None)
  Receive Date: 20081223
  Receipt Date: 20081219
  Transmission Date: 20090506
  Serious: Yes (Hospitalization, Disabling)
  Sender: FDA-Public Use
  Company Number: IT-NOVOPROD-282564

PATIENT
  Sex: Male
  Weight: 70 kg

DRUGS (1)
  1. NOVORAPID FLEXPEN [Suspect]
     Indication: DIABETES MELLITUS

REACTIONS (1)
  - DIABETIC GANGRENE [None]
